FAERS Safety Report 5260069-1 (Version None)
Quarter: 2007Q1

REPORT INFORMATION
  Report Type: 
  Country: None (occurrence: None)
  Receive Date: 20070309
  Receipt Date: 20060228
  Transmission Date: 20070707
  Serious: No
  Sender: FDA-Public Use
  Company Number: US-GLAXOSMITHKLINE-A0595239A

PATIENT
  Age: 44 Year
  Sex: Female

DRUGS (1)
  1. NICORETTE [Suspect]
     Dates: start: 20060223, end: 20060226

REACTIONS (5)
  - EATING DISORDER [None]
  - ORAL DISCOMFORT [None]
  - ORAL MUCOSAL BLISTERING [None]
  - ORAL PAIN [None]
  - TREMOR [None]
